FAERS Safety Report 19026416 (Version 1)
Quarter: 2021Q1

REPORT INFORMATION
  Report Type: Report from Study
  Country: GB (occurrence: GB)
  Receive Date: 20210318
  Receipt Date: 20210318
  Transmission Date: 20210420
  Serious: Yes (Other)
  Sender: FDA-Public Use
  Company Number: GB-JNJFOC-20201017697

PATIENT
  Sex: Male

DRUGS (3)
  1. IPATASERTIB. [Suspect]
     Active Substance: IPATASERTIB
     Indication: PROSTATE CANCER METASTATIC
     Route: 065
  2. PREDNISONE. [Suspect]
     Active Substance: PREDNISONE
     Indication: PROSTATE CANCER METASTATIC
     Route: 065
  3. ABIRATERONE ACETATE. [Suspect]
     Active Substance: ABIRATERONE ACETATE
     Indication: PROSTATE CANCER METASTATIC
     Route: 048

REACTIONS (4)
  - Hyperglycaemia [Unknown]
  - Rash [Unknown]
  - Transaminases increased [Unknown]
  - Diarrhoea [Unknown]
